FAERS Safety Report 5746282-5 (Version None)
Quarter: 2008Q2

REPORT INFORMATION
  Report Type: 
  Country: None (occurrence: None)
  Receive Date: 20080522
  Receipt Date: 20080514
  Transmission Date: 20081010
  Serious: Yes (Hospitalization)
  Sender: FDA-Public Use
  Company Number: PHBS2008DE04412

PATIENT
  Age: 46 Year
  Sex: Male

DRUGS (5)
  1. PRIMIDONE [Concomitant]
     Indication: PARKINSON'S DISEASE
     Dosage: 375 MG / DAY
     Route: 048
     Dates: start: 20080404
  2. AKINETON /SCH/ [Concomitant]
     Indication: PARKINSON'S DISEASE
     Dosage: 4 MG / DAY
     Route: 048
     Dates: start: 20080403
  3. STALEVO 100 [Suspect]
     Indication: PARKINSON'S DISEASE
     Dosage: 5 TIMES PER DAY
     Route: 048
     Dates: start: 20080409, end: 20080411
  4. PRAMIPEXOLE DIHYDROCHLORIDE [Concomitant]
     Indication: PARKINSON'S DISEASE
     Dosage: 2.8 MG / DAY
     Route: 048
     Dates: start: 20080403
  5. DOMPERIDONE [Concomitant]
     Indication: PARKINSON'S DISEASE
     Dosage: 40 MG / DAY
     Route: 048
     Dates: start: 20080408, end: 20080415

REACTIONS (5)
  - BLOOD CREATINE PHOSPHOKINASE INCREASED [None]
  - BLOOD CREATININE INCREASED [None]
  - CONDITION AGGRAVATED [None]
  - RHABDOMYOLYSIS [None]
  - TREMOR [None]
